FAERS Safety Report 7817701-5 (Version None)
Quarter: 2011Q4

REPORT INFORMATION
  Report Type: 
  Country: None (occurrence: None)
  Receive Date: 20111017
  Receipt Date: 20111005
  Transmission Date: 20120403
  Serious: No
  Sender: FDA-Public Use
  Company Number: US-JNJFOC-20111002997

PATIENT
  Sex: Male

DRUGS (2)
  1. PROLIXIN [Concomitant]
     Indication: SCHIZOPHRENIA
     Route: 048
  2. INVEGA SUSTENNA [Suspect]
     Indication: SCHIZOPHRENIA
     Route: 030
     Dates: start: 20110301

REACTIONS (2)
  - DRUG INEFFECTIVE [None]
  - DELUSION [None]
